FAERS Safety Report 13215071 (Version 1)
Quarter: 2017Q1

REPORT INFORMATION
  Report Type: Spontaneous
  Country: US (occurrence: US)
  Receive Date: 20170210
  Receipt Date: 20170210
  Transmission Date: 20170428
  Serious: Yes (Other)
  Sender: FDA-Public Use
  Company Number: US-PFIZER INC-2017055081

PATIENT
  Sex: Female

DRUGS (1)
  1. ESTRING [Suspect]
     Active Substance: ESTRADIOL
     Dosage: 2 MG, UNK
     Route: 067

REACTIONS (3)
  - Vaginal haemorrhage [Unknown]
  - Muscle spasms [Unknown]
  - Vulvovaginal pruritus [Unknown]
